FAERS Safety Report 24616338 (Version 2)
Quarter: 2025Q3

REPORT INFORMATION
  Report Type: Spontaneous
  Country: CN (occurrence: CN)
  Receive Date: 20241114
  Receipt Date: 20250802
  Transmission Date: 20251020
  Serious: Yes (Hospitalization)
  Sender: ALEXION PHARMACEUTICALS
  Company Number: CN-ASTRAZENECA-202410CHN027603CN

PATIENT
  Age: 68 Year
  Sex: Male
  Weight: 56 kg

DRUGS (3)
  1. BRILINTA [Suspect]
     Active Substance: TICAGRELOR
     Indication: Platelet aggregation inhibition
     Dosage: 90 MILLIGRAM, BID
     Dates: start: 20241025, end: 20241026
  2. DYPHYLLINE [Concomitant]
     Active Substance: DYPHYLLINE
     Dosage: UNK, QD
  3. THEOPHYLLINE [Concomitant]
     Active Substance: THEOPHYLLINE

REACTIONS (1)
  - Chest discomfort [Recovering/Resolving]

NARRATIVE: CASE EVENT DATE: 20241026
